FAERS Safety Report 6646083-X (Version None)
Quarter: 2010Q1

REPORT INFORMATION
  Report Type: 
  Country: None (occurrence: None)
  Receive Date: 20100323
  Receipt Date: 20100315
  Transmission Date: 20100710
  Serious: Yes (Life-Threatening, Hospitalization)
  Sender: FDA-Public Use
  Company Number: PHHY2009GB47583

PATIENT
  Sex: Female

DRUGS (2)
  1. DESERIL [Suspect]
     Dosage: 4 MG, CYCLICALLY, 5 MONTHS ON AND 1 MONTH OFF
     Route: 048
     Dates: start: 20051201, end: 20090701
  2. ZOMIG [Concomitant]
     Dosage: UNK

REACTIONS (6)
  - HYDROURETER [None]
  - OEDEMA PERIPHERAL [None]
  - OESOPHAGEAL STENT INSERTION [None]
  - RENAL IMPAIRMENT [None]
  - RETROPERITONEAL FIBROSIS [None]
  - VENOUS STENT INSERTION [None]
